FAERS Safety Report 24685000 (Version 1)
Quarter: 2024Q4

REPORT INFORMATION
  Report Type: Spontaneous
  Country: SA (occurrence: SA)
  Receive Date: 20241202
  Receipt Date: 20241202
  Transmission Date: 20250114
  Serious: Yes (Other)
  Sender: USPHARMA
  Company Number: SA-USP-004913

PATIENT
  Age: 32 Year
  Sex: Male

DRUGS (1)
  1. DEXTROAMPHETAMINE [Suspect]
     Active Substance: DEXTROAMPHETAMINE
     Indication: Attention deficit hyperactivity disorder
     Route: 065

REACTIONS (2)
  - Cardiomyopathy [Recovered/Resolved]
  - Cardiac failure acute [Recovering/Resolving]
